FAERS Safety Report 17104275 (Version 1)
Quarter: 2019Q4

REPORT INFORMATION
  Report Type: Spontaneous
  Country: US (occurrence: US)
  Receive Date: 20191203
  Receipt Date: 20191203
  Transmission Date: 20200122
  Serious: No
  Sender: FDA-Public Use
  Company Number: US-UCBSA-2017049506

PATIENT
  Sex: Female

DRUGS (2)
  1. KEPPRA [Suspect]
     Active Substance: LEVETIRACETAM
     Indication: PRODUCT USED FOR UNKNOWN INDICATION
     Dosage: UNK
  2. KEPPRA [Suspect]
     Active Substance: LEVETIRACETAM
     Dosage: UNK, 5X/DAY

REACTIONS (6)
  - Arthralgia [Unknown]
  - Intentional product misuse [Unknown]
  - Myalgia [Unknown]
  - Condition aggravated [Unknown]
  - Influenza like illness [Unknown]
  - White blood cell count increased [Unknown]
